FAERS Safety Report 12215148 (Version 1)
Quarter: 2016Q1

REPORT INFORMATION
  Report Type: Spontaneous
  Country: None (occurrence: CO)
  Receive Date: 20160328
  Receipt Date: 20160328
  Transmission Date: 20160526
  Serious: Yes (Hospitalization)
  Sender: FDA-Public Use
  Company Number: CO-POPULATION COUNCIL, INC.-1049825

PATIENT
  Age: 27 Year
  Sex: Female
  Weight: 65 kg

DRUGS (1)
  1. JADELLE [Suspect]
     Active Substance: LEVONORGESTREL
     Indication: CONTRACEPTION
     Route: 059
     Dates: start: 20100604

REACTIONS (7)
  - Implant site pain [None]
  - Urine abnormality [None]
  - Pregnancy with implant contraceptive [None]
  - Implant site erythema [None]
  - Abortion [None]
  - Implant site inflammation [None]
  - Exposure during pregnancy [None]

NARRATIVE: CASE EVENT DATE: 20100604
